FAERS Safety Report 4409450-0 (Version None)
Quarter: 2004Q3

REPORT INFORMATION
  Report Type: 
  Country: None (occurrence: None)
  Receive Date: 20040722
  Receipt Date: 20040712
  Transmission Date: 20050211
  Serious: Yes (Hospitalization, Other)
  Sender: FDA-Public Use
  Company Number: HQWYE030113JUL04

PATIENT
  Age: 16 Year
  Sex: Male
  Weight: 63.6 kg

DRUGS (8)
  1. RAPAMUNE [Suspect]
     Indication: PROPHYLAXIS AGAINST TRANSPLANT REJECTION
     Dosage: 3 MG 1X PER 1 DAY, ORAL
     Route: 048
     Dates: start: 20040227
  2. VALGANCICLOVIR [Concomitant]
  3. NYSTATIN [Concomitant]
  4. CLONIDINE HCL [Concomitant]
  5. PREDNISONE [Concomitant]
  6. PERCOCET [Concomitant]
  7. DOCUSATE [Concomitant]
  8. SULFAMETHOXAZOLE + TRIMETHOPRIM [Concomitant]

REACTIONS (4)
  - ADHESION [None]
  - ILEUS [None]
  - PAIN [None]
  - SMALL INTESTINAL OBSTRUCTION [None]
